FAERS Safety Report 4613212-9 (Version None)
Quarter: 2005Q1

REPORT INFORMATION
  Report Type: 
  Country: None (occurrence: None)
  Receive Date: 20050315
  Receipt Date: 20050302
  Transmission Date: 20050727
  Serious: Yes (Life-Threatening)
  Sender: FDA-Public Use
  Company Number: 2005040629

PATIENT
  Age: 75 Year
  Sex: Male

DRUGS (13)
  1. LINEZOLID TABLET (LINEZOLID) [Suspect]
     Indication: INTERVERTEBRAL DISCITIS
     Dosage: 1200 MG (600 MG, BID), ORAL
     Route: 048
     Dates: start: 20040901, end: 20040927
  2. ACETYLSALICYLIC ACID (ACETYLSALICYLIC ACID) [Concomitant]
  3. SOTALOL HCL [Concomitant]
  4. ATORVASTATIN CALCIUM [Concomitant]
  5. GLYBURIDE [Concomitant]
  6. BI PREDONIUM (INDAPAMIDE, PERINDOPRIL ERBUMINE) [Concomitant]
  7. MAGNESIUM HYDROGEN ASPARATATE (MAGNESIUM HYDROGEN ASPARTATE) [Concomitant]
  8. TOLTERODINE TARTRATE [Concomitant]
  9. ACETAMINOPHEN [Concomitant]
  10. KALINOR-BRAUSETABLETTEN (POTASSIUM CARBONATE, POTASSIUM CITRATE) [Concomitant]
  11. DIMETINDENE MALEATE (DIMETINDENE MALEATE) [Concomitant]
  12. PANTOPRAZOLE SODIUM [Concomitant]
  13. HEPARIN-FRACTION, SODIUM SALT (HEPARIN-FRACTION, SODIUM SALT) [Concomitant]

REACTIONS (1)
  - HYPOGLYCAEMIA [None]
